FAERS Safety Report 16963927 (Version 1)
Quarter: 2019Q4

REPORT INFORMATION
  Report Type: Spontaneous
  Country: US (occurrence: US)
  Receive Date: 20191026
  Receipt Date: 20191026
  Transmission Date: 20200122
  Serious: Yes (Congenital Anomaly, Other)
  Sender: FDA-Public Use
  Company Number: NVSC2019US016274

PATIENT
  Age: 0 Day

DRUGS (2)
  1. ZOFRAN [Suspect]
     Active Substance: ONDANSETRON HYDROCHLORIDE
     Indication: FOETAL EXPOSURE DURING PREGNANCY
     Route: 064
  2. ONDANSETRON HCL [Suspect]
     Active Substance: ONDANSETRON HYDROCHLORIDE
     Indication: FOETAL EXPOSURE DURING PREGNANCY
     Dosage: UNK
     Route: 064

REACTIONS (12)
  - Congenital anomaly [Unknown]
  - Foetal exposure during pregnancy [Unknown]
  - Anxiety [Unknown]
  - Atrial septal defect [Unknown]
  - Premature baby [Unknown]
  - Vision abnormal neonatal [Unknown]
  - Anhedonia [Unknown]
  - Anomalous pulmonary venous connection [Unknown]
  - Injury [Not Recovered/Not Resolved]
  - Congenital central nervous system anomaly [Unknown]
  - Heart disease congenital [Unknown]
  - Pain [Unknown]

NARRATIVE: CASE EVENT DATE: 20150714
